FAERS Safety Report 19541566 (Version 1)
Quarter: 2021Q3

REPORT INFORMATION
  Report Type: Spontaneous
  Country: NL (occurrence: AT)
  Receive Date: 20210713
  Receipt Date: 20210713
  Transmission Date: 20211014
  Serious: Yes (Other)
  Sender: FDA-Public Use
  Company Number: AT-FRESENIUS KABI-FK202107075

PATIENT
  Age: 64 Year
  Sex: Female

DRUGS (11)
  1. PACLITAXEL (MANUFACTURER UNKNOWN) [Suspect]
     Active Substance: PACLITAXEL
     Indication: PRODUCT USED FOR UNKNOWN INDICATION
     Dosage: UNK
     Route: 065
     Dates: start: 20181219, end: 20181219
  2. DENOSUMAB [Concomitant]
     Active Substance: DENOSUMAB
     Indication: DRUG THERAPY
     Dosage: UNK
     Route: 065
  3. CALCIUM [Concomitant]
     Active Substance: CALCIUM
     Indication: DRUG THERAPY
     Dosage: UNK
     Route: 065
  4. PEMBROLIZUMAB. [Suspect]
     Active Substance: PEMBROLIZUMAB
     Indication: PALLIATIVE CARE
     Dosage: UNK
     Route: 065
     Dates: start: 202011, end: 20210125
  5. PEMBROLIZUMAB. [Suspect]
     Active Substance: PEMBROLIZUMAB
     Indication: PRODUCT USED FOR UNKNOWN INDICATION
     Dosage: UNK
     Route: 065
     Dates: start: 20190121, end: 202003
  6. PEMBROLIZUMAB. [Suspect]
     Active Substance: PEMBROLIZUMAB
     Dosage: UNK, EVERY 6 WEEKS
     Route: 065
     Dates: start: 202003, end: 202009
  7. PACLITAXEL (MANUFACTURER UNKNOWN) [Suspect]
     Active Substance: PACLITAXEL
     Indication: PALLIATIVE CARE
     Dosage: 175 MILLIGRAM/SQ. METER
     Route: 065
     Dates: start: 20190121, end: 2019
  8. CARBOPLATIN. [Suspect]
     Active Substance: CARBOPLATIN
     Indication: PRODUCT USED FOR UNKNOWN INDICATION
     Dosage: UNK
     Route: 065
     Dates: start: 20181219, end: 20181219
  9. COLECALCIFEROL [Concomitant]
     Active Substance: CHOLECALCIFEROL
     Indication: DRUG THERAPY
     Route: 065
  10. CARBOPLATIN. [Suspect]
     Active Substance: CARBOPLATIN
     Indication: PALLIATIVE CARE
     Dosage: CARBO AUC4
     Route: 065
     Dates: start: 20190121, end: 2019
  11. PEMBROLIZUMAB. [Suspect]
     Active Substance: PEMBROLIZUMAB
     Dosage: UNK
     Route: 065
     Dates: start: 20181219, end: 20181219

REACTIONS (15)
  - Psoriasis [Unknown]
  - Rash maculo-papular [Unknown]
  - Polyneuropathy in malignant disease [Unknown]
  - Hypotension [Unknown]
  - Eastern Cooperative Oncology Group performance status worsened [Recovering/Resolving]
  - Pruritus [Unknown]
  - Steatorrhoea [Recovered/Resolved]
  - Taste disorder [Unknown]
  - Faeces pale [Recovered/Resolved]
  - Pain [Unknown]
  - Nausea [Unknown]
  - Pancreatic failure [Recovered/Resolved]
  - Lichen planus [Unknown]
  - Therapy partial responder [Not Recovered/Not Resolved]
  - Vertigo [Unknown]

NARRATIVE: CASE EVENT DATE: 2019
